FAERS Safety Report 4590994-6 (Version None)
Quarter: 2005Q1

REPORT INFORMATION
  Report Type: 
  Country: None (occurrence: None)
  Receive Date: 20050218
  Receipt Date: 20050203
  Transmission Date: 20050727
  Serious: Yes (Hospitalization)
  Sender: FDA-Public Use
  Company Number: 2005AP01123

PATIENT

DRUGS (7)
  1. SEROQUEL [Suspect]
     Dosage: 200 MG DAILY PO
     Route: 048
     Dates: end: 20040110
  2. LITHIUM CARBONATE CAP [Suspect]
     Indication: BIPOLAR I DISORDER
     Dosage: 500 MG DAILY PO
     Route: 048
     Dates: end: 20040109
  3. OSTELIN [Concomitant]
  4. NEXIUM [Concomitant]
  5. METOPROLOL [Concomitant]
  6. OXAZEPAM [Concomitant]
  7. VENLAFAXINE HCL [Concomitant]

REACTIONS (3)
  - DIABETES INSIPIDUS [None]
  - DRUG LEVEL INCREASED [None]
  - RENAL FAILURE ACUTE [None]
